FAERS Safety Report 4427330-1 (Version None)
Quarter: 2004Q3

REPORT INFORMATION
  Report Type: 
  Country: None (occurrence: None)
  Receive Date: 20040812
  Receipt Date: 20040730
  Transmission Date: 20050211
  Serious: Yes (Other)
  Sender: FDA-Public Use
  Company Number: DE-SHR-03-019239

PATIENT
  Age: 58 Year
  Sex: Female
  Weight: 60 kg

DRUGS (2)
  1. BETAFERON [Suspect]
     Dosage: 1 DOSE, SUBCUTANEOUS; SEE IMAGE
     Route: 058
     Dates: start: 20031226, end: 20031226
  2. BETAFERON [Suspect]
     Dosage: 1 DOSE, SUBCUTANEOUS; SEE IMAGE
     Route: 058
     Dates: start: 20000601, end: 20040701

REACTIONS (6)
  - DEPRESSED LEVEL OF CONSCIOUSNESS [None]
  - HEADACHE [None]
  - INFLUENZA LIKE ILLNESS [None]
  - PHARMACEUTICAL PRODUCT COMPLAINT [None]
  - SYNCOPE [None]
  - UNEVALUABLE EVENT [None]
